FAERS Safety Report 12216572 (Version 1)
Quarter: 2016Q1

REPORT INFORMATION
  Report Type: Spontaneous
  Country: US (occurrence: None)
  Receive Date: 20160328
  Receipt Date: 20160328
  Transmission Date: 20160526
  Serious: Yes (Other)
  Sender: FDA-Public Use
  Company Number: None

PATIENT
  Age: 15 Year
  Sex: Male

DRUGS (2)
  1. BODY SPRAY WILD COLLECTION DEODORANT BODY SPRAY BEARGLOVE 3.75OZ [Suspect]
     Active Substance: COSMETICS
  2. OLD SPICE WILD COLLECTION BEARGLOVE INVISIBLE [Suspect]
     Active Substance: ALUMINUM ZIRCONIUM TRICHLOROHYDREX GLY
     Dosage: A COUPLE OF SPRAYS ON CHEST 1 ONLY TOPICAL
     Route: 061
     Dates: start: 20160303, end: 20160303

REACTIONS (1)
  - Anaphylactic shock [None]

NARRATIVE: CASE EVENT DATE: 20160303
